FAERS Safety Report 13961602 (Version 4)
Quarter: 2018Q4

REPORT INFORMATION
  Report Type: Spontaneous
  Country: IN (occurrence: IN)
  Receive Date: 20170912
  Receipt Date: 20181009
  Transmission Date: 20190204
  Serious: Yes (Other)
  Sender: FDA-Public Use
  Company Number: IN-PFIZER INC-2017387798

PATIENT
  Age: 43 Year
  Sex: Female
  Weight: 69 kg

DRUGS (3)
  1. CARBOPLATIN. [Suspect]
     Active Substance: CARBOPLATIN
     Indication: METASTASES TO LIVER
     Dosage: 400 MG, CYCLIC (REQUIRING SIX CYCLES)
  2. GEMCITABINE [Suspect]
     Active Substance: GEMCITABINE\GEMCITABINE HYDROCHLORIDE
     Indication: METASTASES TO LIVER
     Dosage: 1500 MG, CYCLIC (REQUIRING SIX CYCLES)
  3. TELMISARTAN. [Concomitant]
     Active Substance: TELMISARTAN
     Indication: BLOOD PRESSURE MEASUREMENT
     Dosage: 40 MG, UNK

REACTIONS (1)
  - Retinal infarction [Recovered/Resolved]

NARRATIVE: CASE EVENT DATE: 20131008
